FAERS Safety Report 12194976 (Version 1)
Quarter: 2016Q1

REPORT INFORMATION
  Report Type: Spontaneous
  Country: US (occurrence: US)
  Receive Date: 20160321
  Receipt Date: 20160321
  Transmission Date: 20160526
  Serious: No
  Sender: FDA-Public Use
  Company Number: US-TARO-2015TAR00252

PATIENT
  Age: 96 Year
  Sex: Male
  Weight: 61.22 kg

DRUGS (3)
  1. CICLOPIROX SHAMPOO 1% [Suspect]
     Active Substance: CICLOPIROX
     Dosage: 1 DOSAGE UNITS, 2X/WEEK
     Route: 061
     Dates: start: 201502, end: 20150316
  2. CICLOPIROX SHAMPOO 1% [Suspect]
     Active Substance: CICLOPIROX
     Indication: PSORIASIS
     Dosage: 1 DOSAGE UNITS, UNK
     Route: 061
     Dates: start: 20141031
  3. BABY ASPIRIN [Concomitant]
     Active Substance: ASPIRIN

REACTIONS (4)
  - Application site scab [Recovering/Resolving]
  - Rash macular [Recovering/Resolving]
  - Drug ineffective [Not Recovered/Not Resolved]
  - Dyspnoea [Not Recovered/Not Resolved]

NARRATIVE: CASE EVENT DATE: 201502
